FAERS Safety Report 17865649 (Version 1)
Quarter: 2020Q2

REPORT INFORMATION
  Report Type: Spontaneous
  Country: US (occurrence: US)
  Receive Date: 20200605
  Receipt Date: 20200605
  Transmission Date: 20200714
  Serious: Yes (Other)
  Sender: FDA-Public Use
  Company Number: US-SUNOVION-2020SUN001669

PATIENT
  Age: 32 Year
  Sex: Male

DRUGS (2)
  1. LATUDA [Suspect]
     Active Substance: LURASIDONE HYDROCHLORIDE
     Dosage: 10 MG (HALF 20MG TAB), QD
     Route: 048
  2. LATUDA [Suspect]
     Active Substance: LURASIDONE HYDROCHLORIDE
     Dosage: 20 MG, QD
     Route: 048

REACTIONS (6)
  - Underdose [Unknown]
  - Feeling of despair [Recovered/Resolved]
  - Nausea [Unknown]
  - Wrong technique in product usage process [Unknown]
  - Suicidal ideation [Recovered/Resolved]
  - Photophobia [Unknown]
